FAERS Safety Report 7946863-4 (Version None)
Quarter: 2011Q4

REPORT INFORMATION
  Report Type: 
  Country: None (occurrence: None)
  Receive Date: 20111129
  Receipt Date: 20111125
  Transmission Date: 20120403
  Serious: Yes (Death)
  Sender: FDA-Public Use
  Company Number: PHHY2011JP104051

PATIENT
  Age: 90 Year
  Sex: Female

DRUGS (1)
  1. RIVASTIGMINE [Suspect]
     Indication: DEMENTIA ALZHEIMER'S TYPE
     Dosage: 4.5 MG DAILY
     Route: 062
     Dates: start: 20111001, end: 20111122

REACTIONS (1)
  - MARASMUS [None]
